FAERS Safety Report 8222857-9 (Version None)
Quarter: 2012Q1

REPORT INFORMATION
  Report Type: 
  Country: None (occurrence: None)
  Receive Date: 20120320
  Receipt Date: 20120308
  Transmission Date: 20120608
  Serious: Yes (Other)
  Sender: FDA-Public Use
  Company Number: US-ASTRAZENECA-2011SE33875

PATIENT
  Age: 73 Year
  Sex: Female

DRUGS (19)
  1. AYR [Concomitant]
  2. SINGULAIR [Concomitant]
     Dosage: 1 A DAY
  3. CARVEDILOL [Concomitant]
  4. CARTIA XT [Concomitant]
  5. ALENDRONATE SODIUM [Concomitant]
  6. ALBUTEROL [Concomitant]
  7. FISH OIL [Concomitant]
  8. E SUP [Concomitant]
  9. ZYRTEC [Concomitant]
     Indication: HYPERSENSITIVITY
  10. CALCIUM D3 [Concomitant]
  11. ATACAND [Suspect]
     Route: 048
  12. LEVOXYL [Concomitant]
  13. QVAR 40 [Concomitant]
  14. VAPO RUB [Concomitant]
  15. BENAFIBER [Concomitant]
  16. VITAMIN - ES [Concomitant]
  17. SYMBICORT [Suspect]
     Dosage: 80 MCG, 2 PUFFS ONCE A DAY
     Route: 055
  18. SYMBICORT [Suspect]
     Dosage: 160 MCG, 2 PUFFS TWO TIMES A DAY
     Route: 055
     Dates: start: 20110301
  19. ONE A DAY [Concomitant]

REACTIONS (11)
  - HAEMORRHOIDS [None]
  - HYPERTENSION [None]
  - PRURITUS [None]
  - BACK PAIN [None]
  - MULTIPLE ALLERGIES [None]
  - DRY EYE [None]
  - SPINAL FRACTURE [None]
  - CATARACT [None]
  - ASTHMA [None]
  - LUNG DISORDER [None]
  - BACK INJURY [None]
